FAERS Safety Report 5316942-9 (Version None)
Quarter: 2007Q2

REPORT INFORMATION
  Report Type: 
  Country: None (occurrence: None)
  Receive Date: 20070501
  Receipt Date: 20070501
  Transmission Date: 20071010
  Serious: Yes (Other)
  Sender: FDA-Public Use
  Company Number: None

PATIENT
  Age: 39 Year
  Sex: Female
  Weight: 59.4212 kg

DRUGS (1)
  1. INFED [Suspect]
     Indication: IRON DEFICIENCY ANAEMIA
     Dosage: 750 MG  MONTHLY   IV
     Route: 042
     Dates: start: 20070403, end: 20070430

REACTIONS (2)
  - CHEST PAIN [None]
  - DYSPNOEA [None]
